FAERS Safety Report 4638185-4 (Version None)
Quarter: 2005Q2

REPORT INFORMATION
  Report Type: 
  Country: None (occurrence: None)
  Receive Date: 20050415
  Receipt Date: 20050328
  Transmission Date: 20051028
  Serious: Yes (Other)
  Sender: FDA-Public Use
  Company Number: USA050392591

PATIENT
  Sex: Male

DRUGS (3)
  1. PROZAC [Suspect]
     Indication: ANXIETY
     Dosage: 20 MG DAY
     Route: 048
     Dates: start: 20050228, end: 20050307
  2. ATIVAN [Concomitant]
  3. CIPRO [Concomitant]

REACTIONS (14)
  - AGGRESSION [None]
  - ANGER [None]
  - BURNING SENSATION [None]
  - CRYING [None]
  - DEPRESSION [None]
  - HOMICIDAL IDEATION [None]
  - MENTAL DISORDER [None]
  - MUSCLE CONTRACTIONS INVOLUNTARY [None]
  - MUSCLE TWITCHING [None]
  - PARAESTHESIA [None]
  - PARAESTHESIA ORAL [None]
  - SUICIDAL IDEATION [None]
  - TENSION [None]
  - THINKING ABNORMAL [None]
